FAERS Safety Report 19563905 (Version 6)
Quarter: 2022Q3

REPORT INFORMATION
  Report Type: Spontaneous
  Country: US (occurrence: US)
  Receive Date: 20210714
  Receipt Date: 20220913
  Transmission Date: 20221026
  Serious: Yes (Other)
  Sender: FDA-Public Use
  Company Number: US-PFIZER INC-2021809008

PATIENT
  Age: 54 Year
  Sex: Male

DRUGS (3)
  1. XELJANZ XR [Suspect]
     Active Substance: TOFACITINIB CITRATE
     Dosage: 11 MG
  2. XELJANZ XR [Suspect]
     Active Substance: TOFACITINIB CITRATE
     Dosage: 11 MG, ALTERNATE DAY (ONCE EVERY OTHER DAY)
     Route: 048
  3. TRULICITY [Suspect]
     Active Substance: DULAGLUTIDE
     Dosage: UNK

REACTIONS (5)
  - Diabetes mellitus [Unknown]
  - Off label use [Unknown]
  - Product prescribing error [Unknown]
  - Liver disorder [Unknown]
  - Hepatic enzyme abnormal [Unknown]
